FAERS Safety Report 8159199-6 (Version None)
Quarter: 2012Q1

REPORT INFORMATION
  Report Type: 
  Country: None (occurrence: None)
  Receive Date: 20120223
  Receipt Date: 20120214
  Transmission Date: 20120608
  Serious: Yes (Other)
  Sender: FDA-Public Use
  Company Number: US-JNJFOC-20120207305

PATIENT
  Age: 54 Year
  Sex: Female

DRUGS (2)
  1. HYDROXYZINE [Suspect]
     Indication: PRODUCT USED FOR UNKNOWN INDICATION
     Route: 065
  2. ELMIRON [Suspect]
     Indication: CYSTITIS INTERSTITIAL
     Route: 048
     Dates: start: 20090701

REACTIONS (3)
  - INTESTINAL ULCER [None]
  - IRRITABLE BOWEL SYNDROME [None]
  - RECTAL ULCER [None]
